FAERS Safety Report 8295782-5 (Version None)
Quarter: 2012Q2

REPORT INFORMATION
  Report Type: 
  Country: None (occurrence: None)
  Receive Date: 20120418
  Receipt Date: 20120416
  Transmission Date: 20120825
  Serious: No
  Sender: FDA-Public Use
  Company Number: US-TEVA-333853USA

PATIENT
  Sex: Female

DRUGS (4)
  1. BIOTIN [Concomitant]
     Indication: MEDICAL DIET
  2. LEVOXYL [Concomitant]
     Indication: AUTOIMMUNE THYROIDITIS
     Dosage: 75 MICROGRAM;
     Route: 048
  3. PLAN B ONE-STEP [Suspect]
     Indication: POST COITAL CONTRACEPTION
     Dosage: 1.5 MILLIGRAM;
     Route: 048
     Dates: start: 20120413, end: 20120413
  4. VITAMIN B-12 [Concomitant]
     Indication: MEDICAL DIET

REACTIONS (5)
  - HORMONE LEVEL ABNORMAL [None]
  - PREMENSTRUAL SYNDROME [None]
  - CRYING [None]
  - NAUSEA [None]
  - ABDOMINAL PAIN UPPER [None]
